FAERS Safety Report 5496711-X (Version None)
Quarter: 2007Q4

REPORT INFORMATION
  Report Type: 
  Country: None (occurrence: None)
  Receive Date: 20071025
  Receipt Date: 20070705
  Transmission Date: 20080405
  Serious: No
  Sender: FDA-Public Use
  Company Number: A0662311A

PATIENT
  Age: 62 Year
  Sex: Female

DRUGS (6)
  1. ADVAIR DISKUS 100/50 [Suspect]
     Indication: CHRONIC OBSTRUCTIVE PULMONARY DISEASE
     Route: 055
     Dates: start: 20070201, end: 20070101
  2. XOPENEX [Suspect]
     Indication: CHRONIC OBSTRUCTIVE PULMONARY DISEASE
     Dosage: 45UG PER DAY
     Route: 055
     Dates: start: 20070201, end: 20070506
  3. SPIRIVA [Suspect]
     Indication: CHRONIC OBSTRUCTIVE PULMONARY DISEASE
     Route: 055
     Dates: start: 20070201, end: 20070401
  4. ALBUTEROL + IPRATROPIUM BROMIDE [Suspect]
     Indication: CHRONIC OBSTRUCTIVE PULMONARY DISEASE
     Route: 055
  5. LANOXIN [Concomitant]
  6. FLUTICASONE PROPIONATE [Concomitant]

REACTIONS (4)
  - CONSTIPATION [None]
  - EXTRASYSTOLES [None]
  - ORAL DISCOMFORT [None]
  - TACHYCARDIA [None]
